FAERS Safety Report 25958025 (Version 1)
Quarter: 2025Q4

REPORT INFORMATION
  Report Type: Spontaneous
  Country: US (occurrence: None)
  Receive Date: 20251023
  Receipt Date: 20251023
  Transmission Date: 20260117
  Serious: Yes (Death)
  Sender: FDA-CTU
  Company Number: None

PATIENT
  Age: 91 Year
  Sex: Female
  Weight: 40.05 kg

DRUGS (1)
  1. CINACALCET HYDROCHLORIDE [Suspect]
     Active Substance: CINACALCET HYDROCHLORIDE
     Indication: Thyroid disorder
     Dosage: 30 MG DAILY ORAL
     Route: 048
     Dates: start: 20231019

REACTIONS (1)
  - Death [None]

NARRATIVE: CASE EVENT DATE: 20250823
